FAERS Safety Report 7493376-2 (Version None)
Quarter: 2011Q2

REPORT INFORMATION
  Report Type: 
  Country: None (occurrence: None)
  Receive Date: 20110519
  Receipt Date: 20110519
  Transmission Date: 20111010
  Serious: Yes (Disabling)
  Sender: FDA-Public Use
  Company Number: None

PATIENT
  Age: 66 Year
  Sex: Female
  Weight: 84.6 kg

DRUGS (1)
  1. DABIGATRAN 75MG BOEHRINGER INGELHEIM [Suspect]
     Indication: ATRIAL FIBRILLATION
     Dosage: 75MG BID PO
     Route: 048
     Dates: start: 20110428, end: 20110517

REACTIONS (1)
  - RASH [None]
